FAERS Safety Report 19216158 (Version 1)
Quarter: 2021Q2

REPORT INFORMATION
  Report Type: Spontaneous
  Country: US (occurrence: US)
  Receive Date: 20210505
  Receipt Date: 20210505
  Transmission Date: 20210717
  Serious: No
  Sender: FDA-Public Use
  Company Number: US-009507513-2104USA002258

PATIENT
  Sex: Male

DRUGS (7)
  1. INTRON A [Suspect]
     Active Substance: INTERFERON ALFA-2B
     Indication: GLIOBLASTOMA MULTIFORME
     Dosage: 3 MILLION/M2 IU
     Route: 058
     Dates: start: 2019, end: 2019
  2. TETANUS/DIPHTHERIA TOXOIDS [Concomitant]
     Indication: GLIOBLASTOMA MULTIFORME
     Dosage: UNK
     Route: 030
     Dates: start: 2019, end: 2019
  3. TEMODAR [Suspect]
     Active Substance: TEMOZOLOMIDE
     Indication: GLIOBLASTOMA MULTIFORME
     Dosage: 100 MG/M2
     Dates: start: 2019
  4. NATURAL KILLER CELLS [Concomitant]
     Active Substance: IMMUNE CELLS HUMAN
     Indication: GLIOBLASTOMA MULTIFORME
     Dosage: 18 MILLION PER KILOGRAM
     Route: 042
     Dates: start: 2019, end: 2019
  5. CELEBREX [Concomitant]
     Active Substance: CELECOXIB
     Indication: PROPHYLAXIS
     Dosage: 200 MILLIGRAM/DAY PO
     Route: 048
  6. PROLEUKIN [Concomitant]
     Active Substance: ALDESLEUKIN
     Indication: GLIOBLASTOMA MULTIFORME
     Dosage: 6 MILLION IU/M2
     Dates: start: 2019, end: 2019
  7. FLUDARABINE PHOSPHATE. [Concomitant]
     Active Substance: FLUDARABINE PHOSPHATE
     Indication: GLIOBLASTOMA MULTIFORME
     Dosage: 15 MG/M2
     Route: 042
     Dates: start: 2019, end: 2019

REACTIONS (1)
  - Off label use [Unknown]

NARRATIVE: CASE EVENT DATE: 2019
